FAERS Safety Report 15898792 (Version 1)
Quarter: 2019Q1

REPORT INFORMATION
  Report Type: Spontaneous
  Country: US (occurrence: US)
  Receive Date: 20190201
  Receipt Date: 20190201
  Transmission Date: 20190417
  Serious: No
  Sender: FDA-Public Use
  Company Number: PHEH2019US004563

PATIENT
  Sex: Female
  Weight: 85.17 kg

DRUGS (2)
  1. IBRANCE [Suspect]
     Active Substance: PALBOCICLIB
     Indication: BREAST CANCER METASTATIC
     Dosage: 125 MG, QD (D1 TO 21, Q28 DAYS)
     Route: 048
     Dates: start: 20170824
  2. ZOMETA [Suspect]
     Active Substance: ZOLEDRONIC ACID
     Indication: BREAST CANCER METASTATIC
     Dosage: UNK
     Route: 065
     Dates: start: 20170913

REACTIONS (6)
  - Pyrexia [Unknown]
  - Pain [Unknown]
  - White blood cell count decreased [Unknown]
  - Musculoskeletal chest pain [Unknown]
  - Incontinence [Unknown]
  - Pain in extremity [Unknown]
